FAERS Safety Report 18000003 (Version 2)
Quarter: 2020Q3

REPORT INFORMATION
  Report Type: Spontaneous
  Country: US (occurrence: US)
  Receive Date: 20200709
  Receipt Date: 20200918
  Transmission Date: 20201103
  Serious: No
  Sender: FDA-Public Use
  Company Number: US-BAUSCH-BL-2020-018767

PATIENT
  Age: 71 Year
  Sex: Female
  Weight: 50.39 kg

DRUGS (5)
  1. CALCIUM WITH VITAMIN D [Concomitant]
     Active Substance: CALCIUM\VITAMIN D
     Indication: PRODUCT USED FOR UNKNOWN INDICATION
     Route: 065
  2. XIFAXAN [Suspect]
     Active Substance: RIFAXIMIN
     Dosage: 26/JUN/2020 ONLY MORNING DOSE WAS TAKEN
     Route: 048
     Dates: start: 20200626, end: 20200626
  3. XIFAXAN [Suspect]
     Active Substance: RIFAXIMIN
     Dosage: TOOK ONE TABLET IN MORNING
     Route: 048
     Dates: start: 20200720
  4. XIFAXAN [Suspect]
     Active Substance: RIFAXIMIN
     Indication: GASTROINTESTINAL BACTERIAL OVERGROWTH
     Dosage: IN THE AFTERNOON AND THAT NIGHT
     Route: 048
     Dates: start: 20200624, end: 20200624
  5. XIFAXAN [Suspect]
     Active Substance: RIFAXIMIN
     Indication: PRODUCT USE IN UNAPPROVED INDICATION
     Route: 048
     Dates: start: 20200625, end: 20200625

REACTIONS (7)
  - Lip swelling [Unknown]
  - Nausea [Unknown]
  - Product use in unapproved indication [Unknown]
  - Chest pain [Unknown]
  - Oropharyngeal pain [Unknown]
  - Dyspnoea [Unknown]
  - Throat tightness [Unknown]

NARRATIVE: CASE EVENT DATE: 20200624
